FAERS Safety Report 4526194-5 (Version None)
Quarter: 2005Q1

REPORT INFORMATION
  Report Type: 
  Country: None (occurrence: None)
  Receive Date: 20041202
  Receipt Date: 20040803
  Transmission Date: 20050727
  Serious: Yes (Other)
  Sender: FDA-Public Use
  Company Number: 200419742BWH

PATIENT
  Sex: Male

DRUGS (3)
  1. LEVITRA [Suspect]
     Indication: SEXUAL DYSFUNCTION
     Dosage: 10 MG, PRN, ORAL;  10 MG, TOTAL DAILY; ORAL
     Route: 048
     Dates: start: 20040701
  2. LEVITRA [Suspect]
     Indication: SEXUAL DYSFUNCTION
     Dosage: 10 MG, PRN, ORAL;  10 MG, TOTAL DAILY; ORAL
     Route: 048
     Dates: start: 20040802
  3. EXTEND [Concomitant]

REACTIONS (1)
  - ERECTION INCREASED [None]
